FAERS Safety Report 25664531 (Version 1)
Quarter: 2025Q3

REPORT INFORMATION
  Report Type: Spontaneous
  Country: US (occurrence: US)
  Receive Date: 20250811
  Receipt Date: 20250811
  Transmission Date: 20251021
  Serious: No
  Sender: CHIESI
  Company Number: US-CHIESI-2024CHF08322

PATIENT
  Age: 20 Year
  Sex: Male

DRUGS (3)
  1. JUXTAPID [Suspect]
     Active Substance: LOMITAPIDE MESYLATE
     Indication: Type IIa hyperlipidaemia
     Route: 048
     Dates: start: 20240601, end: 20241001
  2. EVKEEZA [Concomitant]
     Active Substance: EVINACUMAB-DGNB
     Indication: Type IIa hyperlipidaemia
     Dates: start: 20240601, end: 20241001
  3. LOVASTATIN [Concomitant]
     Active Substance: LOVASTATIN
     Indication: Type IIa hyperlipidaemia

REACTIONS (1)
  - Diarrhoea [Recovered/Resolved]

NARRATIVE: CASE EVENT DATE: 20240601
